FAERS Safety Report 20583798 (Version 4)
Quarter: 2022Q1

REPORT INFORMATION
  Report Type: Spontaneous
  Country: US (occurrence: US)
  Receive Date: 20220311
  Receipt Date: 20220317
  Transmission Date: 20220423
  Serious: Yes (Other)
  Sender: FDA-Public Use
  Company Number: US-KOREA IPSEN Pharma-2022-06423

PATIENT
  Age: 44 Year
  Sex: Female

DRUGS (6)
  1. DYSPORT [Suspect]
     Active Substance: ABOBOTULINUMTOXINA
     Indication: Skin wrinkling
     Dosage: DOSE NOT REPORTED
     Route: 065
     Dates: start: 2020, end: 2020
  2. DYSPORT [Suspect]
     Active Substance: ABOBOTULINUMTOXINA
     Indication: Skin wrinkling
  3. DYSPORT [Suspect]
     Active Substance: ABOBOTULINUMTOXINA
     Indication: Off label use
  4. TRINTELLIX [Concomitant]
     Active Substance: VORTIOXETINE HYDROBROMIDE
     Indication: Antidepressant therapy
     Dosage: MAY BE A YEAR AGO
  5. OLAY WITH RETINOL MOISTURIZER [Concomitant]
  6. FIORICET PRN [Concomitant]
     Indication: Headache
     Dosage: 10 YEARS

REACTIONS (9)
  - Bell^s palsy [Recovered/Resolved]
  - Swelling face [Recovered/Resolved]
  - Rhinorrhoea [Unknown]
  - Facial asymmetry [Unknown]
  - Drug resistance [Unknown]
  - Product preparation error [Unknown]
  - Off label use [Unknown]
  - Off label use [Unknown]
  - Drug ineffective [Unknown]

NARRATIVE: CASE EVENT DATE: 20200101
